FAERS Safety Report 10242823 (Version 3)
Quarter: 2014Q4

REPORT INFORMATION
  Report Type: Spontaneous
  Country: US (occurrence: US)
  Receive Date: 20140618
  Receipt Date: 20141224
  Transmission Date: 20150528
  Serious: No
  Sender: FDA-Public Use
  Company Number: US-ASTRAZENECA-2014SE40474

PATIENT
  Age: 20955 Day
  Sex: Female
  Weight: 67.1 kg

DRUGS (4)
  1. RHINOCORT AQUA [Suspect]
     Active Substance: BUDESONIDE
     Indication: MULTIPLE ALLERGIES
     Route: 045
     Dates: start: 2002
  2. RHINOCORT AQUA [Suspect]
     Active Substance: BUDESONIDE
     Indication: PROPHYLAXIS
     Dosage: 32 MCG 1 SPRAY EACH NOSTRIL DAILY
     Route: 045
     Dates: start: 2006
  3. RHINOCORT AQUA [Suspect]
     Active Substance: BUDESONIDE
     Indication: PROPHYLAXIS
     Route: 045
     Dates: start: 2002
  4. RHINOCORT AQUA [Suspect]
     Active Substance: BUDESONIDE
     Indication: MULTIPLE ALLERGIES
     Dosage: 32 MCG 1 SPRAY EACH NOSTRIL DAILY
     Route: 045
     Dates: start: 2006

REACTIONS (11)
  - Feeling abnormal [Unknown]
  - Intentional product misuse [Unknown]
  - Drug ineffective [Unknown]
  - Frustration [Unknown]
  - Diverticulitis [Unknown]
  - Abnormal behaviour [Unknown]
  - Sinus disorder [Unknown]
  - Flushing [Unknown]
  - Ear discomfort [Unknown]
  - Feeling hot [Unknown]
  - Swelling face [Unknown]

NARRATIVE: CASE EVENT DATE: 2011
